FAERS Safety Report 23849449 (Version 1)
Quarter: 2024Q2

REPORT INFORMATION
  Report Type: Spontaneous
  Country: US (occurrence: None)
  Receive Date: 20240512
  Receipt Date: 20240512
  Transmission Date: 20240715
  Serious: Yes (Hospitalization)
  Sender: FDA-Public Use
  Company Number: None

PATIENT
  Age: 64 Year
  Sex: Male
  Weight: 82 kg

DRUGS (2)
  1. HYDROCHLOROTHIAZIDE [Suspect]
     Active Substance: HYDROCHLOROTHIAZIDE
     Indication: Hypertension
     Dosage: FREQUENCY : DAILY;?
     Route: 048
     Dates: start: 20080331, end: 20230718
  2. ATORVASTATIN [Suspect]
     Active Substance: ATORVASTATIN

REACTIONS (10)
  - Hyponatraemia [None]
  - Muscle spasms [None]
  - Muscle spasms [None]
  - Muscle spasms [None]
  - Muscle spasms [None]
  - Blood creatine phosphokinase increased [None]
  - Therapy cessation [None]
  - Myopathy [None]
  - Diarrhoea [None]
  - Chest pain [None]

NARRATIVE: CASE EVENT DATE: 20190715
